FAERS Safety Report 6680756-8 (Version None)
Quarter: 2010Q2

REPORT INFORMATION
  Report Type: 
  Country: None (occurrence: None)
  Receive Date: 20100414
  Receipt Date: 20100407
  Transmission Date: 20101027
  Serious: Yes (Other)
  Sender: FDA-Public Use
  Company Number: US-PERRIGO-10US008586

PATIENT
  Age: 28 Year

DRUGS (1)
  1. NITETIME FREE CHRY 6HR LIQ 041 [Suspect]
     Indication: INTENTIONAL SELF-INJURY
     Dosage: 300 ML, SINGLE
     Route: 048
     Dates: start: 20100407, end: 20100407

REACTIONS (1)
  - INTENTIONAL OVERDOSE [None]
